FAERS Safety Report 8106010 (Version 2)
Quarter: 2014Q1

REPORT INFORMATION
  Report Type: Spontaneous
  Country: US (occurrence: US)
  Receive Date: 20110825
  Receipt Date: 20140324
  Transmission Date: 20141002
  Serious: Yes (Other)
  Sender: FDA-Public Use
  Company Number: US-BAYER-2011-075538

PATIENT
  Age: 25 Year
  Sex: Female

DRUGS (6)
  1. YAZ [Suspect]
     Indication: PRODUCT USED FOR UNKNOWN INDICATION
     Dosage: UNK
  2. YASMIN [Suspect]
     Indication: PRODUCT USED FOR UNKNOWN INDICATION
     Dosage: UNK
  3. ALPRAZOLAM [Concomitant]
     Dosage: 1 MG, UNK
  4. FLUOXETINE [Concomitant]
     Dosage: 20 MG, UNK
  5. AMOXICILLIN W/CLAVULANATE POTASSIUM [Concomitant]
     Dosage: 875-125 MG, UNK
  6. LACLOTION [Concomitant]
     Dosage: 12 %, UNK

REACTIONS (2)
  - Gallbladder injury [None]
  - Cholecystitis chronic [None]
